FAERS Safety Report 10398720 (Version 2)
Quarter: 2014Q3

REPORT INFORMATION
  Report Type: Spontaneous
  Country: US (occurrence: US)
  Receive Date: 20140821
  Receipt Date: 20140913
  Transmission Date: 20150326
  Serious: Yes (Other)
  Sender: FDA-Public Use
  Company Number: US-JNJFOC-20140814378

PATIENT

DRUGS (7)
  1. IBUPROFEN. [Suspect]
     Active Substance: IBUPROFEN
     Indication: TENSION HEADACHE
     Route: 064
  2. ACETAMINOPHEN. [Suspect]
     Active Substance: ACETAMINOPHEN
     Indication: TENSION HEADACHE
     Route: 064
  3. SUMATRIPTAN [Suspect]
     Active Substance: SUMATRIPTAN
     Indication: TENSION HEADACHE
     Route: 064
  4. ACETAMINOPHEN. [Suspect]
     Active Substance: ACETAMINOPHEN
     Indication: MIGRAINE
     Route: 064
  5. SUMATRIPTAN [Suspect]
     Active Substance: SUMATRIPTAN
     Indication: MIGRAINE
     Route: 064
  6. LIDOCAINE HCL [Suspect]
     Active Substance: LIDOCAINE HYDROCHLORIDE
     Indication: PRODUCT USED FOR UNKNOWN INDICATION
     Dosage: FOR 7 SESSIONS
     Route: 064
  7. IBUPROFEN. [Suspect]
     Active Substance: IBUPROFEN
     Indication: MIGRAINE
     Route: 064

REACTIONS (2)
  - Foetal exposure during pregnancy [Unknown]
  - Premature baby [Unknown]
